FAERS Safety Report 22005985 (Version 1)
Quarter: 2023Q1

REPORT INFORMATION
  Report Type: Spontaneous
  Country: MX (occurrence: MX)
  Receive Date: 20230217
  Receipt Date: 20230217
  Transmission Date: 20230417
  Serious: Yes (Other)
  Sender: FDA-Public Use
  Company Number: MX-BAYER-2023A017556

PATIENT
  Age: 89 Year
  Sex: Female
  Weight: 70 kg

DRUGS (1)
  1. RIVAROXABAN [Suspect]
     Active Substance: RIVAROXABAN
     Indication: Product used for unknown indication
     Dosage: 15 MG, QD
     Route: 048
     Dates: start: 20230106

REACTIONS (3)
  - Lung disorder [Unknown]
  - Decreased appetite [Unknown]
  - Fatigue [Unknown]
